FAERS Safety Report 9524483 (Version 4)
Quarter: 2013Q3

REPORT INFORMATION
  Report Type: Spontaneous
  Country: US (occurrence: US)
  Receive Date: 20130916
  Receipt Date: 20130924
  Transmission Date: 20140515
  Serious: No
  Sender: FDA-Public Use
  Company Number: US-PFIZER INC-2013055513

PATIENT
  Age: 49 Year
  Sex: Female
  Weight: 77.1 kg

DRUGS (2)
  1. CELEBREX [Suspect]
     Indication: OSTEOARTHRITIS
     Dosage: 200 MG, 1X/DAY
     Dates: start: 2006
  2. CELEBREX [Suspect]
     Indication: ARTHRITIS

REACTIONS (7)
  - Intentional drug misuse [Unknown]
  - Poor quality drug administered [Unknown]
  - Product quality issue [Unknown]
  - Malaise [Unknown]
  - Arthritis [Unknown]
  - Drug ineffective [Unknown]
  - Blood urine present [Unknown]
